FAERS Safety Report 6826308-8 (Version None)
Quarter: 2010Q3

REPORT INFORMATION
  Report Type: 
  Country: None (occurrence: None)
  Receive Date: 20100709
  Receipt Date: 20100630
  Transmission Date: 20110219
  Serious: Yes (Other)
  Sender: FDA-Public Use
  Company Number: JP-B.I. PHARMACEUTICALS,INC./RIDGEFIELD-2009-BP-14449NB

PATIENT
  Sex: Male
  Weight: 49 kg

DRUGS (10)
  1. SPIRIVA [Suspect]
     Indication: CHRONIC OBSTRUCTIVE PULMONARY DISEASE
     Dosage: 18 MCG
     Route: 055
     Dates: start: 20091026, end: 20091228
  2. MUCOSOLVAN [Concomitant]
     Indication: BRONCHITIS CHRONIC
     Dosage: 45 MG
     Route: 048
     Dates: start: 20060802, end: 20091129
  3. ASPENON [Concomitant]
     Indication: BRADYARRHYTHMIA
     Dosage: 40 MG
     Route: 048
     Dates: start: 20060726
  4. BEPRICOR [Concomitant]
     Indication: BRADYARRHYTHMIA
     Dosage: 100 MG
     Route: 048
     Dates: start: 20060726
  5. MAGMITT [Concomitant]
     Indication: CONSTIPATION
     Dosage: 990 MG
     Route: 048
     Dates: start: 20060815
  6. BASEN OD [Concomitant]
     Indication: DIABETES MELLITUS
     Dosage: 0.6 MG
     Route: 048
     Dates: start: 20060822
  7. WARFARIN [Concomitant]
     Indication: EMBOLISM ARTERIAL
     Dosage: 1 MG
     Route: 048
     Dates: start: 20060726
  8. ALDACTONE [Concomitant]
     Indication: HYPERTENSION
     Dosage: 25 MG
     Route: 048
     Dates: start: 20060110
  9. LAC-B [Concomitant]
     Indication: CONSTIPATION
     Dosage: 3 MG
     Route: 048
     Dates: start: 20080512
  10. ARTIST [Concomitant]
     Indication: HYPERTENSION
     Dosage: 2.5 MG
     Route: 048
     Dates: start: 20060725

REACTIONS (1)
  - ALOPECIA [None]
